FAERS Safety Report 11917980 (Version 2)
Quarter: 2016Q1

REPORT INFORMATION
  Report Type: Report from Study
  Country: CA (occurrence: CA)
  Receive Date: 20160114
  Receipt Date: 20160217
  Transmission Date: 20160526
  Serious: Yes (Other)
  Sender: FDA-Public Use
  Company Number: CA-GILEAD-2016-0191107

PATIENT
  Age: 59 Year
  Sex: Male

DRUGS (1)
  1. LEDIPASVIR/SOFOSBUVIR [Suspect]
     Active Substance: LEDIPASVIR\SOFOSBUVIR
     Indication: CHRONIC HEPATITIS C
     Dosage: 1 DF, UNK
     Route: 048
     Dates: start: 20151215

REACTIONS (14)
  - Pollakiuria [Unknown]
  - Mobility decreased [Unknown]
  - Nocturia [Unknown]
  - Drug dose omission [Recovered/Resolved]
  - Contusion [Unknown]
  - Fall [Unknown]
  - Hypoaesthesia [Unknown]
  - Peripheral swelling [Unknown]
  - Pain in extremity [Unknown]
  - Skin haemorrhage [Unknown]
  - Loss of consciousness [Unknown]
  - Vision blurred [Unknown]
  - Thirst [Unknown]
  - Memory impairment [Unknown]

NARRATIVE: CASE EVENT DATE: 20160104
